FAERS Safety Report 9817147 (Version 1)
Quarter: 2014Q1

REPORT INFORMATION
  Report Type: Spontaneous
  Country: GB (occurrence: GB)
  Receive Date: 20140114
  Receipt Date: 20140114
  Transmission Date: 20141002
  Serious: Yes (Life-Threatening, Hospitalization)
  Sender: FDA-Public Use
  Company Number: PHFR2014GB000583

PATIENT
  Age: 36 Year
  Sex: Female
  Weight: 83.4 kg

DRUGS (14)
  1. CARBAMAZEPINE [Suspect]
     Indication: TRIGEMINAL NEURALGIA
     Route: 048
     Dates: end: 20140106
  2. TRIMETHOPRIM [Suspect]
     Indication: URINARY TRACT INFECTION
     Route: 048
     Dates: start: 20140101, end: 20140106
  3. ENOXAPARIN [Concomitant]
  4. CYCLIZINE [Concomitant]
  5. DOSULEPIN [Concomitant]
  6. ZAFIRLUKAST [Concomitant]
  7. SERETIDE [Concomitant]
  8. THEOPHYLLINE [Concomitant]
  9. FOLIC ACID [Concomitant]
  10. PROCHLORPERAZINE [Concomitant]
  11. PARACETAMOL [Concomitant]
  12. TRAMADOL [Concomitant]
  13. VENTOLIN                           /00942701/ [Concomitant]
  14. ONDANSETRON [Concomitant]

REACTIONS (1)
  - Pancytopenia [Not Recovered/Not Resolved]
